FAERS Safety Report 5211745-8 (Version None)
Quarter: 2007Q1

REPORT INFORMATION
  Report Type: 
  Country: None (occurrence: None)
  Receive Date: 20070116
  Receipt Date: 20070108
  Transmission Date: 20070707
  Serious: Yes (Life-Threatening, Hospitalization, Other)
  Sender: FDA-Public Use
  Company Number: 2006002347

PATIENT
  Age: 75 Year
  Sex: Female

DRUGS (5)
  1. MACUGEN [Suspect]
     Indication: MACULAR DEGENERATION
     Dosage: 0.3 MG (06WKS), INTRA-VITREAL
     Dates: start: 20061025
  2. LOSARTAN POTASSIUM [Concomitant]
  3. LETROZOLE [Concomitant]
  4. ADCAL-D3 (LEKOVITCA) [Concomitant]
  5. FUROSEMIDE [Concomitant]

REACTIONS (2)
  - ACUTE MYOCARDIAL INFARCTION [None]
  - PNEUMONIA PRIMARY ATYPICAL [None]
